FAERS Safety Report 11811492 (Version 2)
Quarter: 2025Q3

REPORT INFORMATION
  Report Type: Spontaneous
  Country: US (occurrence: US)
  Receive Date: 20151208
  Receipt Date: 20250904
  Transmission Date: 20251020
  Serious: No
  Sender: BOSTON SCIENTIFIC
  Company Number: US-BIOCOMPATIBLES UK LTD-BTG00395

PATIENT
  Age: 16 Year
  Sex: Male

DRUGS (1)
  1. VARITHENA [Suspect]
     Active Substance: POLIDOCANOL
     Indication: Peripheral venous disease

REACTIONS (1)
  - Product administered to patient of inappropriate age [Unknown]
